FAERS Safety Report 11994549 (Version 1)
Quarter: 2016Q1

REPORT INFORMATION
  Report Type: Spontaneous
  Country: US (occurrence: US)
  Receive Date: 20160203
  Receipt Date: 20160203
  Transmission Date: 20160526
  Serious: No
  Sender: FDA-Public Use
  Company Number: US-UCBSA-2015035163

PATIENT
  Sex: Female

DRUGS (8)
  1. DILANTIN [Concomitant]
     Active Substance: PHENYTOIN
     Indication: SEIZURE
  2. DIASTAT [Concomitant]
     Active Substance: DIAZEPAM
     Indication: SEIZURE
  3. KLONOPIN [Concomitant]
     Active Substance: CLONAZEPAM
     Indication: SEIZURE
  4. CLONAZEPAM. [Concomitant]
     Active Substance: CLONAZEPAM
     Indication: SEIZURE
  5. KEPPRA [Suspect]
     Active Substance: LEVETIRACETAM
     Indication: SEIZURE
  6. BANZEL [Concomitant]
     Active Substance: RUFINAMIDE
     Indication: SEIZURE
  7. ONFI [Concomitant]
     Active Substance: CLOBAZAM
     Indication: SEIZURE
  8. TRILEPTAL [Concomitant]
     Active Substance: OXCARBAZEPINE
     Indication: SEIZURE

REACTIONS (1)
  - Drug ineffective [Unknown]
